FAERS Safety Report 6372637-4 (Version None)
Quarter: 2009Q3

REPORT INFORMATION
  Report Type: 
  Country: None (occurrence: None)
  Receive Date: 20090924
  Receipt Date: 20090706
  Transmission Date: 20100115
  Serious: Yes (Other)
  Sender: FDA-Public Use
  Company Number: US-ASTRAZENECA-2008UW27610

PATIENT
  Age: 38 Year
  Sex: Female
  Weight: 108.9 kg

DRUGS (4)
  1. SEROQUEL [Suspect]
     Indication: SLEEP DISORDER
     Dosage: 100 - 300 MG
     Route: 048
     Dates: start: 20010610, end: 20080201
  2. XANAX [Concomitant]
     Dates: start: 20080430, end: 20081022
  3. PROZAC [Concomitant]
     Dates: start: 19830214, end: 20070101
  4. VALIUM [Concomitant]
     Dates: start: 19981229, end: 20070806

REACTIONS (5)
  - ADVERSE DRUG REACTION [None]
  - CARPAL TUNNEL SYNDROME [None]
  - PANCREATITIS [None]
  - PNEUMONIA [None]
  - TYPE 1 DIABETES MELLITUS [None]
